FAERS Safety Report 7818923-X (Version None)
Quarter: 2011Q4

REPORT INFORMATION
  Report Type: 
  Country: None (occurrence: None)
  Receive Date: 20111017
  Receipt Date: 20111017
  Transmission Date: 20120403
  Serious: Yes (Hospitalization)
  Sender: FDA-Public Use
  Company Number: None

PATIENT
  Sex: Female
  Weight: 135 kg

DRUGS (2)
  1. ATIVAN [Concomitant]
  2. METHOTREXATE [Suspect]
     Dosage: 45 MG

REACTIONS (8)
  - FEBRILE NEUTROPENIA [None]
  - MENINGITIS [None]
  - ASTHENIA [None]
  - PHOTOPHOBIA [None]
  - HEADACHE [None]
  - TOXICITY TO VARIOUS AGENTS [None]
  - CEREBROVASCULAR ACCIDENT [None]
  - DRUG INEFFECTIVE [None]
